FAERS Safety Report 5136307-2 (Version None)
Quarter: 2006Q4

REPORT INFORMATION
  Report Type: 
  Country: None (occurrence: None)
  Receive Date: 20061027
  Receipt Date: 20061010
  Transmission Date: 20070319
  Serious: Yes (Hospitalization)
  Sender: FDA-Public Use
  Company Number: JP-JPN-A200604100

PATIENT
  Age: 42 Year
  Sex: Male

DRUGS (6)
  1. PAXIL [Suspect]
     Indication: DEPRESSION
     Route: 048
  2. UNSPECIFIED DRUG [Suspect]
     Route: 065
  3. ANALGESICS [Suspect]
     Route: 065
  4. SULPIRIDE [Concomitant]
     Dosage: 150MG PER DAY
     Route: 065
  5. CHLORPROMAZINE [Concomitant]
     Route: 065
  6. AMITRIPTYLINE HCL [Concomitant]
     Route: 065

REACTIONS (15)
  - ABULIA [None]
  - AFFECT LABILITY [None]
  - ANOREXIA [None]
  - ANXIETY [None]
  - CONDITION AGGRAVATED [None]
  - FEELING GUILTY [None]
  - FRUSTRATION [None]
  - HYPOMANIA [None]
  - INTENTIONAL OVERDOSE [None]
  - IRRITABILITY [None]
  - MALAISE [None]
  - MOOD ALTERED [None]
  - NAUSEA [None]
  - SUICIDAL IDEATION [None]
  - SUICIDE ATTEMPT [None]
